FAERS Safety Report 18170151 (Version 1)
Quarter: 2020Q3

REPORT INFORMATION
  Report Type: Spontaneous
  Country: US (occurrence: US)
  Receive Date: 20200819
  Receipt Date: 20200819
  Transmission Date: 20201103
  Serious: Yes (Hospitalization)
  Sender: FDA-Public Use
  Company Number: US-MYLANLABS-2020M1072078

PATIENT
  Age: 17 Year
  Sex: Male

DRUGS (5)
  1. NADOLOL. [Suspect]
     Active Substance: NADOLOL
     Dosage: 60 MILLIGRAM, BID
     Route: 065
  2. FLECAINIDE [Suspect]
     Active Substance: FLECAINIDE
     Dosage: DOSE GRADUALLY INCREASED TO 150 MG TWICE A DAY (2.5 MG/KG/DAY) OVER 5 DAYS..
     Route: 065
  3. FLECAINIDE [Suspect]
     Active Substance: FLECAINIDE
     Indication: VENTRICULAR TACHYCARDIA
     Dosage: [INITIAL DOSAGE NOT STATED]
     Route: 065
  4. NADOLOL. [Suspect]
     Active Substance: NADOLOL
     Dosage: LATER, THE DOSE INCREASED TO UNSPECIFIED DOSE
     Route: 065
  5. NADOLOL. [Suspect]
     Active Substance: NADOLOL
     Indication: VENTRICULAR TACHYCARDIA
     Dosage: 30 MG TWICE A DAY (0.5 MG/KG/DAY); LATER, THE DOSE INCREASED TO UNSPECIFIED DOSE
     Route: 065

REACTIONS (6)
  - Condition aggravated [Unknown]
  - Drug ineffective [Unknown]
  - Sinus bradycardia [Unknown]
  - Hypotension [Unknown]
  - Dizziness [Unknown]
  - Bradycardia [Unknown]
